FAERS Safety Report 5595625-4 (Version None)
Quarter: 2008Q1

REPORT INFORMATION
  Report Type: 
  Country: None (occurrence: None)
  Receive Date: 20080116
  Receipt Date: 20080116
  Transmission Date: 20080703
  Serious: Yes (Life-Threatening)
  Sender: FDA-Public Use
  Company Number: None

PATIENT
  Age: 45 Year
  Weight: 61 kg

DRUGS (1)
  1. DOBUTAMINE HCL [Suspect]
     Indication: CARDIAC DISORDER
     Dosage: 28MCG/KG/MINUTE  CONTIN  IV DRIP
     Route: 041

REACTIONS (4)
  - HEART RATE ABNORMAL [None]
  - INCORRECT DRUG ADMINISTRATION RATE [None]
  - NAUSEA [None]
  - VOMITING [None]
